FAERS Safety Report 21965050 (Version 2)
Quarter: 2023Q1

REPORT INFORMATION
  Report Type: Report from Study
  Country: US (occurrence: US)
  Receive Date: 20230207
  Receipt Date: 20230316
  Transmission Date: 20230418
  Serious: Yes (Hospitalization, Other)
  Sender: FDA-Public Use
  Company Number: US-ABBVIE-4297659

PATIENT
  Sex: Male

DRUGS (1)
  1. IMBRUVICA [Suspect]
     Active Substance: IBRUTINIB
     Indication: Chronic lymphocytic leukaemia
     Route: 048
     Dates: start: 20221124, end: 20230123

REACTIONS (5)
  - Dizziness [Unknown]
  - Dyspnoea [Unknown]
  - Pericardial effusion [Unknown]
  - Pericardial haemorrhage [Unknown]
  - Nasal dryness [Unknown]
